FAERS Safety Report 6879986-1 (Version None)
Quarter: 2010Q3

REPORT INFORMATION
  Report Type: 
  Country: None (occurrence: None)
  Receive Date: 20100728
  Receipt Date: 20100716
  Transmission Date: 20110219
  Serious: Yes (Other)
  Sender: FDA-Public Use
  Company Number: PHHY2010US47284

PATIENT
  Sex: Female

DRUGS (2)
  1. DIOVAN [Suspect]
     Dosage: 160 MG
  2. AVELOX [Concomitant]

REACTIONS (4)
  - CONTUSION [None]
  - ERYTHEMA [None]
  - PAIN [None]
  - RASH [None]
